FAERS Safety Report 6468822-3 (Version None)
Quarter: 2009Q4

REPORT INFORMATION
  Report Type: 
  Country: None (occurrence: None)
  Receive Date: 20091203
  Receipt Date: 20080428
  Transmission Date: 20100525
  Serious: Yes (Hospitalization, Other)
  Sender: FDA-Public Use
  Company Number: US-ELI_LILLY_AND_COMPANY-US200609007082

PATIENT
  Sex: Female

DRUGS (9)
  1. FORTEO [Suspect]
     Indication: OSTEOPOROSIS
     Dosage: UNK, UNK
     Dates: start: 20051201
  2. FORTEO [Suspect]
     Dosage: 3 ML, UNK
     Dates: start: 20060923, end: 20060923
  3. FORTEO [Suspect]
     Dates: start: 20070301
  4. NORVASC [Concomitant]
     Dosage: 5 MG, DAILY (1/D)
  5. DIOVAN [Concomitant]
     Dosage: 160 MG, DAILY (1/D)
  6. FOLIC ACID [Concomitant]
     Dosage: 1 MG, UNK
  7. XANAX [Concomitant]
     Dosage: 0.5 MG, AS NEEDED
  8. CALCIUM CARBONATE [Concomitant]
     Dosage: 600 MG, DAILY (1/D)
  9. LOVENOX [Concomitant]
     Dosage: 30 MG, DAILY (1/D)
     Route: 058

REACTIONS (14)
  - ACCIDENTAL OVERDOSE [None]
  - ARTHRITIS [None]
  - ASTHENIA [None]
  - CONFUSIONAL STATE [None]
  - DEHYDRATION [None]
  - DISORIENTATION [None]
  - HYPERHIDROSIS [None]
  - HYPONATRAEMIA [None]
  - HYPOTENSION [None]
  - INJECTION SITE HAEMATOMA [None]
  - INJECTION SITE PAIN [None]
  - LETHARGY [None]
  - MEDICATION ERROR [None]
  - MEMORY IMPAIRMENT [None]
